FAERS Safety Report 11935149 (Version 1)
Quarter: 2016Q1

REPORT INFORMATION
  Report Type: Spontaneous
  Country: FR (occurrence: FR)
  Receive Date: 20160121
  Receipt Date: 20160121
  Transmission Date: 20160526
  Serious: Yes (Hospitalization, Other)
  Sender: FDA-Public Use
  Company Number: FR-PFIZER INC-2016019551

PATIENT
  Age: 94 Year
  Sex: Male

DRUGS (5)
  1. APURONE [Suspect]
     Active Substance: FLUMEQUINE
     Dosage: 400 MG, 2X/DAY IN MORNINGS AND EVENINGS
     Route: 048
     Dates: start: 2015, end: 20151226
  2. NEURONTIN [Suspect]
     Active Substance: GABAPENTIN
     Dosage: 100 MG, 2X/DAY
     Route: 048
     Dates: start: 2015, end: 20151226
  3. APURONE [Suspect]
     Active Substance: FLUMEQUINE
     Indication: DEVICE RELATED INFECTION
     Dosage: 400 MG, 2X/DAY IN MORNINGS AND EVENINGS
     Route: 048
     Dates: start: 20051101, end: 201511
  4. INFLUVAC [Concomitant]
     Active Substance: INFLUENZA VIRUS VACCINE
     Dosage: 0.5 ML
     Dates: start: 20151108
  5. NEURONTIN [Suspect]
     Active Substance: GABAPENTIN
     Indication: NEURALGIA
     Dosage: 100 MG, 2X/DAY
     Route: 048
     Dates: start: 201505, end: 201511

REACTIONS (2)
  - Rash erythematous [Recovered/Resolved]
  - Acute kidney injury [Unknown]

NARRATIVE: CASE EVENT DATE: 2015
